FAERS Safety Report 6236530-X (Version None)
Quarter: 2009Q2

REPORT INFORMATION
  Report Type: 
  Country: None (occurrence: None)
  Receive Date: 20090619
  Receipt Date: 20090612
  Transmission Date: 20091009
  Serious: Yes (Other)
  Sender: FDA-Public Use
  Company Number: B0575983A

PATIENT
  Sex: Male
  Weight: 27 kg

DRUGS (1)
  1. SERETIDE [Suspect]
     Indication: ASTHMA
     Route: 055
     Dates: start: 20090320, end: 20090520

REACTIONS (4)
  - CONTUSION [None]
  - ECCHYMOSIS [None]
  - POLLAKIURIA [None]
  - URINARY RETENTION [None]
